FAERS Safety Report 7079443-6 (Version None)
Quarter: 2010Q4

REPORT INFORMATION
  Report Type: 
  Country: None (occurrence: None)
  Receive Date: 20101102
  Receipt Date: 20101027
  Transmission Date: 20110411
  Serious: Yes (Hospitalization)
  Sender: FDA-Public Use
  Company Number: US-B.I. PHARMACEUTICALS,INC./RIDGEFIELD-2010-BP-11289PF

PATIENT
  Sex: Female
  Weight: 68 kg

DRUGS (8)
  1. SPIRIVA [Suspect]
     Indication: LUNG DISORDER
     Dates: start: 20100901
  2. NEURONTIN [Suspect]
     Indication: RESTLESS LEGS SYNDROME
     Dosage: 600 MG
     Dates: start: 20100801
  3. PREDNISONE [Suspect]
     Dates: end: 20100101
  4. SYMBICORT [Concomitant]
  5. COMBIVENT [Concomitant]
     Dates: end: 20100901
  6. BENTYL [Concomitant]
  7. BUSPAR [Concomitant]
  8. CELEXA [Concomitant]

REACTIONS (1)
  - MYOCARDIAL INFARCTION [None]
